FAERS Safety Report 7884363-0 (Version None)
Quarter: 2011Q4

REPORT INFORMATION
  Report Type: 
  Country: None (occurrence: None)
  Receive Date: 20111102
  Receipt Date: 20111026
  Transmission Date: 20120403
  Serious: Yes (Hospitalization)
  Sender: FDA-Public Use
  Company Number: FR-PFIZER INC-2011260394

PATIENT
  Age: 30 Year
  Sex: Male

DRUGS (5)
  1. LEDERFOLINE [Suspect]
     Indication: VITAMIN SUPPLEMENTATION
     Dosage: 25 MG, 1X/DAY
     Route: 048
     Dates: start: 20101220, end: 20110107
  2. PYRIMETHAMINE TAB [Suspect]
     Indication: TOXOPLASMOSIS
     Dosage: 50 MG, 1X/DAY
     Route: 048
     Dates: start: 20101217, end: 20110107
  3. ADIAZINE [Concomitant]
  4. KEPPRA [Suspect]
     Indication: CONVULSION
     Dosage: 500 MG, 2X/DAY
     Route: 048
     Dates: start: 20101217, end: 20110107
  5. CLINDAMYCIN HCL [Suspect]
     Indication: TOXOPLASMOSIS
     Dosage: 600 MG, 4X/DAY
     Route: 048
     Dates: start: 20101228, end: 20110107

REACTIONS (1)
  - TOXIC SKIN ERUPTION [None]
